FAERS Safety Report 17595369 (Version 1)
Quarter: 2020Q1

REPORT INFORMATION
  Report Type: Spontaneous
  Country: US (occurrence: US)
  Receive Date: 20200329
  Receipt Date: 20200329
  Transmission Date: 20200409
  Serious: No
  Sender: FDA-Public Use
  Company Number: US-ASTRAZENECA-2020SE33681

PATIENT
  Age: 21942 Day
  Sex: Female
  Weight: 52.2 kg

DRUGS (2)
  1. BRIMONIDINE TARTRATE. [Concomitant]
     Active Substance: BRIMONIDINE TARTRATE
     Indication: GLAUCOMA
     Dosage: 1 DROP IN EACH EYE THREE TIMES PER DAY
     Route: 047
  2. BEVESPI AEROSPHERE [Suspect]
     Active Substance: FORMOTEROL FUMARATE\GLYCOPYRROLATE
     Indication: CHRONIC OBSTRUCTIVE PULMONARY DISEASE
     Dosage: 9 MCG OVER 4.8MCG, TO BE ADMINISTERED 2 PUFFS TWO TIMES PER DAY BY INHALATION
     Route: 055
     Dates: start: 20200220, end: 20200303

REACTIONS (2)
  - Intraocular pressure increased [Unknown]
  - Intentional product misuse [Unknown]

NARRATIVE: CASE EVENT DATE: 20200227
